FAERS Safety Report 4464980-0 (Version None)
Quarter: 2004Q4

REPORT INFORMATION
  Report Type: 
  Country: None (occurrence: None)
  Receive Date: 20041004
  Receipt Date: 20040510
  Transmission Date: 20050328
  Serious: No
  Sender: FDA-Public Use
  Company Number: 370320

PATIENT
  Age: 62 Year
  Sex: Female

DRUGS (3)
  1. COREG [Suspect]
     Indication: ILL-DEFINED DISORDER
     Dosage: 6.25MG TWICE PER DAY
     Route: 048
     Dates: start: 20040405
  2. PRINIVIL [Concomitant]
  3. LIPITOR [Concomitant]

REACTIONS (2)
  - BLOOD PRESSURE DECREASED [None]
  - WEIGHT INCREASED [None]
